FAERS Safety Report 16722844 (Version 1)
Quarter: 2019Q3

REPORT INFORMATION
  Report Type: Spontaneous
  Country: US (occurrence: US)
  Receive Date: 20190821
  Receipt Date: 20190821
  Transmission Date: 20191005
  Serious: No
  Sender: FDA-Public Use
  Company Number: US-JNJFOC-20190812737

PATIENT
  Age: 85 Year
  Sex: Male
  Weight: 87.62 kg

DRUGS (1)
  1. TYLENOL [Suspect]
     Active Substance: ACETAMINOPHEN
     Indication: ARTHRALGIA
     Dosage: 2 CAPLETS 1X
     Route: 048
     Dates: start: 20190808

REACTIONS (3)
  - Sputum discoloured [Recovered/Resolved]
  - Chronic obstructive pulmonary disease [Recovered/Resolved]
  - Drug ineffective [Unknown]

NARRATIVE: CASE EVENT DATE: 20190809
